FAERS Safety Report 6202905-8 (Version None)
Quarter: 2009Q2

REPORT INFORMATION
  Report Type: 
  Country: None (occurrence: None)
  Receive Date: 20090526
  Receipt Date: 20090511
  Transmission Date: 20091009
  Serious: Yes (Other)
  Sender: FDA-Public Use
  Company Number: GB-AVENTIS-200915148GDDC

PATIENT

DRUGS (9)
  1. GLIBENCLAMIDE [Suspect]
     Route: 048
  2. METFORMIN HCL [Suspect]
     Route: 048
  3. ROSIGLITAZONE [Suspect]
     Route: 048
  4. ESTROGEN (NOS) [Concomitant]
  5. CALCIUM SUPPLEMENT [Concomitant]
  6. BISPHOSPHONATES [Concomitant]
  7. GLUCOCORTICOIDS [Concomitant]
  8. THIAZIDES [Concomitant]
  9. DIURETICS [Concomitant]

REACTIONS (8)
  - FALL [None]
  - FOOT FRACTURE [None]
  - FRACTURE [None]
  - HAND FRACTURE [None]
  - LIMB INJURY [None]
  - LOWER LIMB FRACTURE [None]
  - SPINAL FRACTURE [None]
  - UPPER LIMB FRACTURE [None]
